FAERS Safety Report 19739319 (Version 2)
Quarter: 2021Q3

REPORT INFORMATION
  Report Type: Report from Study
  Country: US (occurrence: US)
  Receive Date: 20210823
  Receipt Date: 20210902
  Transmission Date: 20211014
  Serious: Yes (Hospitalization, Other)
  Sender: FDA-Public Use
  Company Number: US-TAKEDA-2021TUS052064

PATIENT
  Age: 65 Year
  Sex: Female

DRUGS (15)
  1. METHOTREXATE. [Concomitant]
     Active Substance: METHOTREXATE
     Indication: RHEUMATOID ARTHRITIS
     Dosage: 2.5 MILLIGRAM
     Route: 048
     Dates: start: 20200212
  2. CEFEPIME [Concomitant]
     Active Substance: CEFEPIME HYDROCHLORIDE
     Indication: SEPSIS
     Dosage: 50 MILLILITER
     Route: 042
     Dates: start: 20201018
  3. TEDUGLUTIDE [Suspect]
     Active Substance: TEDUGLUTIDE
     Indication: SHORT-BOWEL SYNDROME
     Route: 065
  4. FISH OIL [Concomitant]
     Active Substance: FISH OIL
     Indication: MINERAL DEFICIENCY
     Dosage: 1000 MILLIGRAM, QD
     Route: 048
     Dates: start: 20201019
  5. EFFEXOR [Concomitant]
     Active Substance: VENLAFAXINE HYDROCHLORIDE
     Indication: DEPRESSION
     Dosage: 75 MILLIGRAM, QD
     Route: 048
     Dates: start: 20200804
  6. POTASSIUM CITRATE. [Concomitant]
     Active Substance: POTASSIUM CITRATE
     Indication: NEPHROLITHIASIS
     Dosage: 10 UNK, TID
     Route: 048
     Dates: start: 20200930
  7. TEDUGLUTIDE [Suspect]
     Active Substance: TEDUGLUTIDE
     Indication: SHORT-BOWEL SYNDROME
     Route: 065
  8. TEDUGLUTIDE [Suspect]
     Active Substance: TEDUGLUTIDE
     Indication: SHORT-BOWEL SYNDROME
     Route: 065
  9. VITAMIN E [Concomitant]
     Active Substance: .ALPHA.-TOCOPHEROL
     Indication: MINERAL DEFICIENCY
     Dosage: 400 INTERNATIONAL UNIT, QD
     Route: 048
     Dates: start: 20201018
  10. METOPROLOL. [Concomitant]
     Active Substance: METOPROLOL
     Indication: HYPERTENSION
     Dosage: 50 MILLIGRAM, QD
     Route: 048
     Dates: start: 20200914
  11. METHOTREXATE. [Concomitant]
     Active Substance: METHOTREXATE
     Indication: PSORIASIS
  12. TEDUGLUTIDE [Suspect]
     Active Substance: TEDUGLUTIDE
     Indication: SHORT-BOWEL SYNDROME
     Route: 065
  13. CLOBETASOL [Concomitant]
     Active Substance: CLOBETASOL
     Indication: PSORIASIS
     Dosage: 0.05, QD
     Route: 061
     Dates: start: 20201019
  14. MIRTAZAPINE. [Concomitant]
     Active Substance: MIRTAZAPINE
     Indication: DEPRESSION
     Dosage: 45 MILLIGRAM, QD
     Route: 048
     Dates: start: 20200804
  15. VITAMIN C [Concomitant]
     Active Substance: ASCORBIC ACID
     Indication: MINERAL DEFICIENCY
     Dosage: 500 MILLIGRAM, QD
     Route: 048
     Dates: start: 20201018

REACTIONS (1)
  - Klebsiella infection [Recovered/Resolved]

NARRATIVE: CASE EVENT DATE: 20201017
